FAERS Safety Report 7426385 (Version 2)
Quarter: 2013Q4

REPORT INFORMATION
  Report Type: Report from Study
  Country: US (occurrence: US)
  Receive Date: 20100621
  Receipt Date: 20131205
  Transmission Date: 20140711
  Serious: Yes (Hospitalization)
  Sender: FDA-Public Use
  Company Number: US-ROCHE-709233

PATIENT
  Age: 53 Year
  Sex: Male

DRUGS (1)
  1. BLINDED BEVACIZUMAB [Suspect]
     Indication: NASOPHARYNGEAL CANCER
     Route: 042

REACTIONS (2)
  - Pneumonia [Unknown]
  - Pneumonia aspiration [Unknown]
